FAERS Safety Report 4696021-4 (Version None)
Quarter: 2005Q2

REPORT INFORMATION
  Report Type: 
  Country: None (occurrence: None)
  Receive Date: 20050621
  Receipt Date: 20050531
  Transmission Date: 20051028
  Serious: Yes (Hospitalization)
  Sender: FDA-Public Use
  Company Number: JP-GLAXOSMITHKLINE-B0383295A

PATIENT
  Age: 51 Year
  Sex: Female
  Weight: 35 kg

DRUGS (6)
  1. VALTREX [Suspect]
     Indication: HERPES ZOSTER OTICUS
     Dosage: 1000MG PER DAY
     Route: 048
     Dates: start: 20050526, end: 20050529
  2. PREDNISOLONE [Concomitant]
     Indication: HERPES ZOSTER OTICUS
     Dosage: 10MG THREE TIMES PER DAY
     Route: 048
     Dates: start: 20050526, end: 20050529
  3. ADALAT [Concomitant]
     Indication: HYPERTENSION
     Dosage: 20MG PER DAY
     Route: 048
  4. DIOVAN [Concomitant]
     Indication: HYPERTENSION
     Dosage: 40MG PER DAY
     Route: 048
  5. RENAGEL [Concomitant]
     Indication: HYPERTENSION
     Route: 048
  6. ARGAMATE [Concomitant]
     Indication: HYPERKALAEMIA
     Dosage: 3U PER DAY
     Route: 048

REACTIONS (13)
  - BLOOD CREATININE INCREASED [None]
  - BLOOD UREA INCREASED [None]
  - CONDITION AGGRAVATED [None]
  - DECREASED APPETITE [None]
  - DEPRESSED LEVEL OF CONSCIOUSNESS [None]
  - DYSSTASIA [None]
  - EATING DISORDER [None]
  - MALAISE [None]
  - METABOLIC ENCEPHALOPATHY [None]
  - RED BLOOD CELL COUNT DECREASED [None]
  - SOMNOLENCE [None]
  - TOXIC INDUCED ENCEPHALOPATHY [None]
  - WHITE BLOOD CELL COUNT INCREASED [None]
